FAERS Safety Report 10072761 (Version 1)
Quarter: 2014Q2

REPORT INFORMATION
  Report Type: Spontaneous
  Country: GB (occurrence: None)
  Receive Date: 20140409
  Receipt Date: 20140409
  Transmission Date: 20141212
  Serious: Yes (Other)
  Sender: FDA-Public Use
  Company Number: AUR-APL-2014-04151

PATIENT
  Age: 59 Year
  Sex: Male
  Weight: 100 kg

DRUGS (6)
  1. SIMVASTATIN (SIMVASTATIN) [Suspect]
     Indication: HYPERCHOLESTEROLAEMIA
     Route: 048
     Dates: start: 201203, end: 201402
  2. AMLODIPINE (AMLODIPINE) [Concomitant]
  3. INDAPAMIDE (INDAPAMIDE) [Concomitant]
  4. METFORMIN (METFORMIN) [Concomitant]
  5. PERINDOPRIL (PERINDOPRIL) [Concomitant]
  6. TAMSULOSIN HYDROCHLORIDE (TAMSULOSIN HYDROCHLORIDE) [Concomitant]

REACTIONS (7)
  - Sleep disorder [None]
  - Fatigue [None]
  - Myalgia [None]
  - Muscular weakness [None]
  - Cough [None]
  - Hypoaesthesia [None]
  - Paraesthesia [None]
